FAERS Safety Report 23101378 (Version 2)
Quarter: 2024Q1

REPORT INFORMATION
  Report Type: Spontaneous
  Country: HR (occurrence: HR)
  Receive Date: 20231024
  Receipt Date: 20240123
  Transmission Date: 20240410
  Serious: Yes (Other)
  Sender: FDA-Public Use
  Company Number: HR-EMA-DD-20231012-7207890-114308

PATIENT
  Sex: Male

DRUGS (3)
  1. REMICADE [Suspect]
     Active Substance: INFLIXIMAB
     Indication: Product used for unknown indication
     Route: 042
  2. NIVOLUMAB [Suspect]
     Active Substance: NIVOLUMAB
     Indication: Product used for unknown indication
     Route: 065
  3. PEMBROLIZUMAB [Suspect]
     Active Substance: PEMBROLIZUMAB
     Indication: Adenocarcinoma
     Dosage: 200 MILLIGRAM, IV / 3 WEEKS
     Route: 042
     Dates: start: 202110

REACTIONS (15)
  - Pleural effusion [Unknown]
  - Pneumocystis jirovecii pneumonia [Unknown]
  - Intestinal perforation [Unknown]
  - COVID-19 [Unknown]
  - Pulmonary alveolar haemorrhage [Unknown]
  - Influenza [Unknown]
  - Pericardial effusion [Unknown]
  - Bronchiolitis [Unknown]
  - Chlamydial infection [Unknown]
  - Pneumonitis [Unknown]
  - Radiation pneumonitis [Unknown]
  - Pericarditis [Unknown]
  - Lymphadenopathy [Unknown]
  - Pulmonary cavitation [Unknown]
  - Malignant neoplasm progression [Unknown]

NARRATIVE: CASE EVENT DATE: 20221101
